FAERS Safety Report 5739043-4 (Version None)
Quarter: 2008Q2

REPORT INFORMATION
  Report Type: 
  Country: None (occurrence: None)
  Receive Date: 20080515
  Receipt Date: 20080515
  Transmission Date: 20081010
  Serious: Yes (Life-Threatening, Hospitalization)
  Sender: FDA-Public Use
  Company Number: None

PATIENT
  Age: 56 Year
  Sex: Male
  Weight: 132.45 kg

DRUGS (2)
  1. HEPARIN SODIUM 1,000 UNITS IN DEXTROSE 5% [Suspect]
     Indication: CARDIOVASCULAR DISORDER
     Dosage: IV
     Route: 042
     Dates: start: 20080129, end: 20080131
  2. HEPARIN SODIUM 1,000 UNITS IN DEXTROSE 5% [Suspect]
     Indication: SURGERY
     Dosage: IV
     Route: 042
     Dates: start: 20080129, end: 20080131

REACTIONS (2)
  - PULMONARY EMBOLISM [None]
  - THROMBOCYTOPENIA [None]
